FAERS Safety Report 8016856 (Version 4)
Quarter: 2013Q2

REPORT INFORMATION
  Report Type: Spontaneous
  Country: US (occurrence: US)
  Receive Date: 20110630
  Receipt Date: 20130503
  Transmission Date: 20140414
  Serious: Yes (Hospitalization, Other)
  Sender: FDA-Public Use
  Company Number: US-BAYER-2011-055008

PATIENT
  Age: 19 Year
  Sex: Female
  Weight: 113.38 kg

DRUGS (9)
  1. YASMIN [Suspect]
     Indication: ACNE
     Dosage: UNK
     Dates: start: 2009
  2. OCELLA [Suspect]
     Indication: ACNE
     Dosage: UNK
     Dates: start: 2009
  3. ANTIBIOTICS [Concomitant]
     Dosage: UNK
     Dates: start: 200905
  4. PROTONIX [Concomitant]
     Indication: GASTRIC ULCER
     Dosage: UNK
     Dates: start: 200904
  5. EXCEDRIN MIGRAINE [Concomitant]
     Indication: HEADACHE
     Dosage: UNK
     Dates: start: 200904, end: 200905
  6. PEPTO BISMOL [Concomitant]
     Indication: GASTRIC DISORDER
     Dosage: UNK
     Dates: start: 200903, end: 200905
  7. IBUPROFEN [Concomitant]
     Indication: HEADACHE
     Dosage: UNK
     Dates: start: 200903
  8. FAMOTIDINE [Concomitant]
     Dosage: UNK
     Dates: start: 20090410, end: 20090507
  9. LUNESTA [Concomitant]
     Route: 048

REACTIONS (12)
  - Superior sagittal sinus thrombosis [None]
  - Transverse sinus thrombosis [None]
  - Jugular vein thrombosis [None]
  - Cerebral infarction [None]
  - Cerebral thrombosis [None]
  - Cerebral thrombosis [None]
  - Cerebrovascular accident [None]
  - Cerebrovascular accident [None]
  - Convulsion [None]
  - Mobility decreased [None]
  - Gallbladder enlargement [None]
  - Pain [None]
